FAERS Safety Report 5444122-5 (Version None)
Quarter: 2007Q3

REPORT INFORMATION
  Report Type: 
  Country: None (occurrence: None)
  Receive Date: 20070831
  Receipt Date: 20070817
  Transmission Date: 20080115
  Serious: Yes (Hospitalization, Disabling)
  Sender: FDA-Public Use
  Company Number: 16253

PATIENT
  Sex: Female

DRUGS (2)
  1. CARBOPLATIN [Suspect]
  2. PACLITAXEL [Suspect]
     Dosage: 280 MG FREQ UNK IV
     Route: 042
     Dates: start: 20061004, end: 20061228

REACTIONS (3)
  - ABASIA [None]
  - DRUG TOXICITY [None]
  - NEUROPATHY PERIPHERAL [None]
